FAERS Safety Report 9147407 (Version 3)
Quarter: 2013Q1

REPORT INFORMATION
  Report Type: Spontaneous
  Country: JP (occurrence: JP)
  Receive Date: 20130307
  Receipt Date: 20130328
  Transmission Date: 20140127
  Serious: Yes (Other)
  Sender: FDA-Public Use
  Company Number: JP-GLAXOSMITHKLINE-B0871646A

PATIENT
  Age: 41 Year
  Sex: Male

DRUGS (2)
  1. FLUTIDE [Suspect]
     Indication: ASTHMA
     Dosage: 200MCG TWICE PER DAY
     Route: 055
     Dates: end: 20130126
  2. TALION [Concomitant]
     Indication: RHINITIS ALLERGIC
     Dosage: 10MG TWICE PER DAY
     Route: 048
     Dates: start: 20130126

REACTIONS (1)
  - Oesophageal candidiasis [Unknown]
